FAERS Safety Report 19059539 (Version 1)
Quarter: 2021Q1

REPORT INFORMATION
  Report Type: Spontaneous
  Country: PT (occurrence: PT)
  Receive Date: 20210326
  Receipt Date: 20210326
  Transmission Date: 20210420
  Serious: Yes (Hospitalization, Other)
  Sender: FDA-Public Use
  Company Number: PT-MACLEODS PHARMACEUTICALS US LTD-MAC2021030552

PATIENT

DRUGS (3)
  1. EMTRICITABINE [Suspect]
     Active Substance: EMTRICITABINE
     Indication: ANTIRETROVIRAL THERAPY
     Dosage: 200 MILLIGRAM, QD
     Route: 065
  2. TENOFOVIR 245 MG [Suspect]
     Active Substance: TENOFOVIR DISOPROXIL
     Indication: ANTIRETROVIRAL THERAPY
     Dosage: 245 MILLIGRAM, QD
     Route: 065
  3. DOLUTEGRAVIR 50 MG [Suspect]
     Active Substance: DOLUTEGRAVIR
     Indication: ANTIRETROVIRAL THERAPY
     Dosage: 50 MILLIGRAM, QD
     Route: 065

REACTIONS (8)
  - Diabetes insipidus [Unknown]
  - Oligohydramnios [Unknown]
  - Hyperosmolar state [Recovered/Resolved]
  - Gestational diabetes [Unknown]
  - Hypernatraemia [Recovered/Resolved]
  - Abortion induced [Unknown]
  - Urine osmolarity decreased [Unknown]
  - Maternal exposure during pregnancy [Unknown]
